FAERS Safety Report 5704618-5 (Version None)
Quarter: 2008Q2

REPORT INFORMATION
  Report Type: 
  Country: None (occurrence: None)
  Receive Date: 20080414
  Receipt Date: 20080409
  Transmission Date: 20081010
  Serious: Yes (Life-Threatening, Hospitalization)
  Sender: FDA-Public Use
  Company Number: FR-ASTRAZENECA-2008CG00553

PATIENT
  Age: 26208 Day
  Sex: Male

DRUGS (12)
  1. DIPRIVAN [Suspect]
     Indication: INDUCTION OF ANAESTHESIA
     Route: 042
     Dates: start: 20080219, end: 20080219
  2. CELOCURIN [Suspect]
     Indication: INDUCTION OF ANAESTHESIA
     Route: 042
     Dates: start: 20080219, end: 20080219
  3. COKENZEN [Concomitant]
  4. ALDACTONE [Concomitant]
  5. KARDEGIC [Concomitant]
     Route: 048
  6. ATORVASTATIN CALCIUM [Concomitant]
  7. ALLOPURINOL [Concomitant]
  8. DEBRIDAT [Concomitant]
  9. TIMOPTIC [Concomitant]
  10. PERMIXON [Concomitant]
  11. INIPOMP [Concomitant]
  12. UNSPECIFIED BETA-BLOCKING AGENT [Concomitant]

REACTIONS (4)
  - ANAPHYLACTIC SHOCK [None]
  - BRONCHOSPASM [None]
  - CIRCULATORY COLLAPSE [None]
  - RASH [None]
